FAERS Safety Report 10529768 (Version 1)
Quarter: 2014Q4

REPORT INFORMATION
  Report Type: Spontaneous
  Country: US (occurrence: None)
  Receive Date: 20141020
  Receipt Date: 20141020
  Transmission Date: 20150528
  Serious: No
  Sender: FDA-Public Use
  Company Number: None

PATIENT
  Age: 66 Year
  Sex: Female
  Weight: 67.13 kg

DRUGS (5)
  1. FISH-OIL [Concomitant]
  2. CITRACAL [Concomitant]
     Active Substance: CALCIUM CITRATE
  3. D3 - 200 IU (NATURE^S BOUNTY) 1 A DAY [Concomitant]
  4. ZOLOFT [Concomitant]
     Active Substance: SERTRALINE HYDROCHLORIDE
  5. WELCHOL [Suspect]
     Active Substance: COLESEVELAM HYDROCHLORIDE
     Indication: BLOOD CHOLESTEROL INCREASED
     Dosage: 625 MG 6 PILLS A DAY

REACTIONS (1)
  - Constipation [None]
